FAERS Safety Report 18279884 (Version 2)
Quarter: 2021Q2

REPORT INFORMATION
  Report Type: Report from Study
  Country: CO (occurrence: CO)
  Receive Date: 20200917
  Receipt Date: 20210627
  Transmission Date: 20210717
  Serious: Yes (Other)
  Sender: FDA-Public Use
  Company Number: CO-JNJFOC-20200917378

PATIENT
  Age: 48 Year
  Sex: Male
  Weight: 80 kg

DRUGS (3)
  1. STELARA [Suspect]
     Active Substance: USTEKINUMAB
     Route: 058
     Dates: start: 20180716
  2. STELARA [Suspect]
     Active Substance: USTEKINUMAB
     Indication: PSORIASIS
     Route: 058
     Dates: start: 2016
  3. BETAMETHASONE. [Suspect]
     Active Substance: BETAMETHASONE
     Indication: PSORIASIS
     Route: 061

REACTIONS (4)
  - Psoriasis [Recovered/Resolved]
  - Rash erythematous [Recovered/Resolved]
  - Drug ineffective [Recovered/Resolved]
  - COVID-19 [Recovered/Resolved]

NARRATIVE: CASE EVENT DATE: 202004
